FAERS Safety Report 11399632 (Version 1)
Quarter: 2015Q3

REPORT INFORMATION
  Report Type: Report from Study
  Country: ES (occurrence: ES)
  Receive Date: 20150820
  Receipt Date: 20150820
  Transmission Date: 20151125
  Serious: Yes (Hospitalization)
  Sender: FDA-Public Use
  Company Number: ES-PFIZER INC-2015274990

PATIENT
  Age: 62 Year
  Sex: Male

DRUGS (7)
  1. METAMIZOLE [Concomitant]
     Active Substance: METAMIZOLE
     Dosage: 575 MG, 2X/DAY
  2. ALDACTONE [Suspect]
     Active Substance: SPIRONOLACTONE
     Indication: ASCITES
     Dosage: 200 MG, 1X/DAY
     Route: 048
     Dates: start: 20150218, end: 20150228
  3. OMEPRAZOLE. [Concomitant]
     Active Substance: OMEPRAZOLE
     Dosage: 20 MG, 1X/DAY
  4. DUPHALAC [Concomitant]
     Active Substance: LACTULOSE
     Dosage: UNK, 2X/DAY
  5. KONAKION [Concomitant]
     Active Substance: PHYTONADIONE
     Dosage: UNK, 1X/DAY
  6. SPIRAXIN [Concomitant]
     Dosage: 600 MG, 2X/DAY
  7. SEGURIL [Interacting]
     Active Substance: FUROSEMIDE
     Indication: CARDIAC FAILURE
     Dosage: 40 MG, 1X/DAY
     Route: 048
     Dates: start: 2015

REACTIONS (2)
  - Drug interaction [Recovered/Resolved]
  - Renal failure [Recovered/Resolved]

NARRATIVE: CASE EVENT DATE: 20150228
